FAERS Safety Report 19166371 (Version 1)
Quarter: 2021Q2

REPORT INFORMATION
  Report Type: Spontaneous
  Country: GB (occurrence: GB)
  Receive Date: 20210421
  Receipt Date: 20210421
  Transmission Date: 20210717
  Serious: Yes (Other)
  Sender: FDA-Public Use
  Company Number: GB-VERTEX PHARMACEUTICALS-2020-002206

PATIENT
  Age: 7 Year
  Sex: Male
  Weight: 20 kg

DRUGS (17)
  1. COLECALCIFEROL [Concomitant]
     Active Substance: CHOLECALCIFEROL
     Indication: ILL-DEFINED DISORDER
     Dosage: 5000 UNITS/ 5 ML
     Route: 048
  2. DORNASE ALFA. [Concomitant]
     Active Substance: DORNASE ALFA
     Indication: ILL-DEFINED DISORDER
  3. OMEPRAZOLE. [Concomitant]
     Active Substance: OMEPRAZOLE
     Indication: ILL-DEFINED DISORDER
  4. PROMIXIN [Concomitant]
     Indication: ILL-DEFINED DISORDER
  5. AZITHROMYCINE [Concomitant]
     Active Substance: AZITHROMYCIN
     Indication: ILL-DEFINED DISORDER
  6. FULTIUM?D3 [Concomitant]
     Active Substance: CHOLECALCIFEROL
     Indication: ILL-DEFINED DISORDER
  7. ORKAMBI [Suspect]
     Active Substance: IVACAFTOR\LUMACAFTOR
     Dosage: 1 TABLET BD
     Route: 048
  8. CREON [Concomitant]
     Active Substance: PANCRELIPASE AMYLASE\PANCRELIPASE LIPASE\PANCRELIPASE PROTEASE
     Indication: ILL-DEFINED DISORDER
  9. CO?AMOXICLAV [Concomitant]
     Active Substance: AMOXICILLIN\CLAVULANATE POTASSIUM
     Indication: ILL-DEFINED DISORDER
  10. ORKAMBI [Suspect]
     Active Substance: IVACAFTOR\LUMACAFTOR
     Dosage: 2 TABLETS BD
     Route: 048
     Dates: start: 202002, end: 202101
  11. FLUCLOXACILLIN [Concomitant]
     Active Substance: FLUCLOXACILLIN
     Indication: ILL-DEFINED DISORDER
  12. DALIVIT [Concomitant]
     Indication: ILL-DEFINED DISORDER
  13. ORKAMBI [Suspect]
     Active Substance: IVACAFTOR\LUMACAFTOR
     Indication: CYSTIC FIBROSIS
     Dosage: 100/ 125 MG, TWO TABLETS, BID
     Route: 048
     Dates: start: 20191211
  14. PARAVIT [Concomitant]
     Active Substance: ACETAMINOPHEN\ASCORBIC ACID
     Indication: ILL-DEFINED DISORDER
  15. AVAMYS [Concomitant]
     Active Substance: FLUTICASONE FUROATE
     Indication: ILL-DEFINED DISORDER
  16. SALBUTAMOL [Concomitant]
     Active Substance: ALBUTEROL
     Indication: ILL-DEFINED DISORDER
  17. CLENIL MODULITE [Concomitant]
     Active Substance: BECLOMETHASONE DIPROPIONATE
     Indication: ILL-DEFINED DISORDER

REACTIONS (7)
  - Insomnia [Recovered/Resolved]
  - Anger [Recovered/Resolved]
  - Aspartate aminotransferase increased [Not Recovered/Not Resolved]
  - Alanine aminotransferase increased [Not Recovered/Not Resolved]
  - Emotional disorder [Recovered/Resolved]
  - Abdominal pain [Unknown]
  - Mood swings [Recovered/Resolved]

NARRATIVE: CASE EVENT DATE: 20191213
